FAERS Safety Report 6039089-5 (Version None)
Quarter: 2009Q1

REPORT INFORMATION
  Report Type: 
  Country: None (occurrence: None)
  Receive Date: 20090115
  Receipt Date: 20090107
  Transmission Date: 20090719
  Serious: Yes (Other)
  Sender: FDA-Public Use
  Company Number: JP-PFIZER INC-2008160248

PATIENT

DRUGS (10)
  1. AMLODIPINE BESILATE [Suspect]
     Dosage: 5 MG, 1X/DAY
     Route: 048
  2. CARDENALIN [Suspect]
     Dosage: 0.5 MG, UNK
  3. CLEANAL [Concomitant]
     Route: 048
  4. ERYTHROCIN #2 [Concomitant]
     Dosage: UNK
     Route: 048
  5. ALBUMIN TANNATE [Concomitant]
     Route: 048
  6. BUCILLAMINE [Concomitant]
     Route: 048
  7. PREDONINE [Concomitant]
     Route: 048
  8. ALENDRONATE SODIUM [Concomitant]
     Route: 048
  9. TOUGHMAC E [Concomitant]
     Route: 048
  10. VALSARTAN [Concomitant]
     Route: 048

REACTIONS (1)
  - HALLUCINATION [None]
